FAERS Safety Report 14628708 (Version 1)
Quarter: 2018Q1

REPORT INFORMATION
  Report Type: Spontaneous
  Country: FR (occurrence: FR)
  Receive Date: 20180313
  Receipt Date: 20180313
  Transmission Date: 20180509
  Serious: Yes (Disabling)
  Sender: FDA-Public Use
  Company Number: FR-MERCK KGAA-2043560

PATIENT
  Sex: Female

DRUGS (1)
  1. NOVOTHYROX [Suspect]
     Active Substance: LEVOTHYROXINE SODIUM
     Indication: PRODUCT USED FOR UNKNOWN INDICATION

REACTIONS (25)
  - Aggression [None]
  - Gastrointestinal disorder [None]
  - Headache [None]
  - Vision blurred [None]
  - Dizziness [None]
  - Irritability [None]
  - Libido decreased [None]
  - Fatigue [None]
  - Insomnia [None]
  - Alopecia [None]
  - Somnolence [None]
  - Mood swings [None]
  - Personal relationship issue [None]
  - Impaired quality of life [None]
  - Asthenia [None]
  - Balance disorder [None]
  - Nervousness [None]
  - Depression [None]
  - Memory impairment [None]
  - Malaise [None]
  - Loss of personal independence in daily activities [None]
  - Hypotonia [None]
  - Diarrhoea [None]
  - Apathy [None]
  - Disturbance in attention [None]
